FAERS Safety Report 4722355-0 (Version None)
Quarter: 2005Q3

REPORT INFORMATION
  Report Type: 
  Country: None (occurrence: None)
  Receive Date: 20050722
  Receipt Date: 20050307
  Transmission Date: 20060218
  Serious: No
  Sender: FDA-Public Use
  Company Number: US-GLAXOSMITHKLINE-A0548628A

PATIENT
  Age: 61 Year
  Sex: Female
  Weight: 112.7 kg

DRUGS (7)
  1. AVANDIA [Suspect]
     Dosage: 4MG PER DAY
     Route: 048
  2. LASIX [Concomitant]
     Indication: BLOOD PRESSURE
     Dosage: 20MG PER DAY
     Route: 048
  3. VOLTAREN [Concomitant]
     Indication: PAIN
     Dosage: 75MG TWICE PER DAY
     Route: 048
  4. LOTENSIN [Concomitant]
     Indication: BLOOD PRESSURE
     Dosage: 10MG PER DAY
     Route: 048
  5. LIPITOR [Concomitant]
     Dosage: 10MG PER DAY
     Route: 048
  6. PREVACID [Concomitant]
     Indication: PROPHYLAXIS
     Dosage: 30MG PER DAY
     Route: 048
  7. POTASSIUM CHLORIDE [Concomitant]
     Dosage: 20MG PER DAY
     Route: 048

REACTIONS (1)
  - BLOOD GLUCOSE INCREASED [None]
